FAERS Safety Report 25683072 (Version 1)
Quarter: 2025Q3

REPORT INFORMATION
  Report Type: Spontaneous
  Country: AU (occurrence: AU)
  Receive Date: 20250814
  Receipt Date: 20250814
  Transmission Date: 20251020
  Serious: Yes (Other)
  Sender: ELI LILLY AND COMPANY
  Company Number: AU-ELI_LILLY_AND_COMPANY-AU202508008868

PATIENT
  Age: 49 Year
  Sex: Male

DRUGS (1)
  1. MOUNJARO [Suspect]
     Active Substance: TIRZEPATIDE
     Indication: Product used for unknown indication
     Dosage: 2.5 MG, WEEKLY (1/W)
     Route: 065

REACTIONS (1)
  - Pemphigoid [Unknown]
